FAERS Safety Report 4648422-8 (Version None)
Quarter: 2005Q2

REPORT INFORMATION
  Report Type: 
  Country: None (occurrence: None)
  Receive Date: 20050427
  Receipt Date: 20050415
  Transmission Date: 20051028
  Serious: Yes (Life-Threatening)
  Sender: FDA-Public Use
  Company Number: HQWYE077518APR05

PATIENT
  Age: 65 Year
  Sex: Male

DRUGS (5)
  1. CORDARONE [Suspect]
     Dosage: ORAL
     Route: 048
  2. CELECOXIB (CELECOXIB, ) [Suspect]
     Dosage: ORAL
     Route: 048
  3. FERROUS GLUCONATE (FERROUS GLUCONATE) [Concomitant]
  4. SPIRONOLACTONE [Concomitant]
  5. GLICLAZIDE (GLICLAZIDE) [Concomitant]

REACTIONS (5)
  - ANAEMIA [None]
  - DRUG INTERACTION [None]
  - GASTRITIS [None]
  - HYPOTENSION [None]
  - MELAENA [None]
